FAERS Safety Report 5786078-1 (Version None)
Quarter: 2008Q2

REPORT INFORMATION
  Report Type: 
  Country: None (occurrence: None)
  Receive Date: 20080620
  Receipt Date: 20080620
  Transmission Date: 20081010
  Serious: Yes (Other)
  Sender: FDA-Public Use
  Company Number: None

PATIENT
  Age: 55 Year
  Sex: Male

DRUGS (13)
  1. CALCIUM CARBONATE (CALCIUM CARBONATE [CALCIUM CARBONATE [Suspect]
     Indication: BLOOD CALCIUM DECREASED
  2. CALCIUM ACETATE [Suspect]
     Indication: BLOOD CALCIUM DECREASED
  3. MIMPARA (CINACALCET) [Suspect]
     Indication: HYPERPARATHYROIDISM SECONDARY
     Dosage: ORAL
     Route: 048
     Dates: start: 20050706, end: 20060201
  4. ALFACALCIDOL [Concomitant]
  5. ARANESP [Concomitant]
  6. ASPIRIN [Concomitant]
  7. CODEINE SUL TAB [Concomitant]
  8. FOLIC ACID [Concomitant]
  9. GABAPENTIN [Concomitant]
  10. GEMFIBROZIL [Concomitant]
  11. LANSOPRAZOLE [Concomitant]
  12. SEVELAMER HYDROCHLORIDE [Concomitant]
  13. VITAMIN B CONCENTRATES [Concomitant]

REACTIONS (3)
  - ABDOMINAL DISCOMFORT [None]
  - BLOOD CALCIUM DECREASED [None]
  - DIARRHOEA [None]
